FAERS Safety Report 6229293-5 (Version None)
Quarter: 2009Q2

REPORT INFORMATION
  Report Type: 
  Country: None (occurrence: None)
  Receive Date: 20090615
  Receipt Date: 20090512
  Transmission Date: 20091009
  Serious: No
  Sender: FDA-Public Use
  Company Number: US-BAYER-200921203NA

PATIENT
  Age: 66 Year
  Sex: Female

DRUGS (5)
  1. ULTRAVIST 150 [Suspect]
     Indication: DRUG USE FOR UNKNOWN INDICATION
  2. ULTRAVIST 300 [Suspect]
     Indication: COMPUTERISED TOMOGRAM ABDOMEN
     Dosage: TOTAL DAILY DOSE: 130 ML
     Route: 042
     Dates: start: 20090512, end: 20090512
  3. BARIUM [Concomitant]
     Route: 048
  4. PREDNISONE [Concomitant]
     Indication: PREMEDICATION
     Dosage: TOTAL DAILY DOSE: 150 MG
     Dates: start: 20090511, end: 20090512
  5. BENADRYL [Concomitant]
     Indication: PREMEDICATION
     Dosage: TOTAL DAILY DOSE: 50 MG

REACTIONS (3)
  - LOCAL SWELLING [None]
  - SWELLING FACE [None]
  - URTICARIA [None]
